FAERS Safety Report 10039099 (Version 2)
Quarter: 2014Q2

REPORT INFORMATION
  Report Type: Spontaneous
  Country: DE (occurrence: DE)
  Receive Date: 20140326
  Receipt Date: 20140401
  Transmission Date: 20141212
  Serious: Yes (Life-Threatening, Hospitalization)
  Sender: FDA-Public Use
  Company Number: DE-JNJFOC-20140313953

PATIENT
  Age: 85 Year
  Sex: Female

DRUGS (3)
  1. REOPRO [Suspect]
     Indication: THROMBOSIS IN DEVICE
     Route: 042
  2. REOPRO [Suspect]
     Indication: PERCUTANEOUS CORONARY INTERVENTION
     Route: 042
  3. EFFIENT [Concomitant]
     Route: 065

REACTIONS (1)
  - Thrombocytopenia [Unknown]
